FAERS Safety Report 10476676 (Version 1)
Quarter: 2014Q3

REPORT INFORMATION
  Report Type: Spontaneous
  Country: GB (occurrence: None)
  Receive Date: 20140923
  Receipt Date: 20140923
  Transmission Date: 20150326
  Serious: Yes (Hospitalization)
  Sender: FDA-Public Use
  Company Number: GB-DEXPHARM-20140605

PATIENT
  Age: 61 Year
  Sex: Female

DRUGS (3)
  1. MESALAMINE. [Concomitant]
     Active Substance: MESALAMINE
  2. LOPERAMIDE [Concomitant]
     Active Substance: LOPERAMIDE
  3. OMEPRAZOLE ACTIVE SUBSTANCE : OMEPRAZOLE [Suspect]
     Active Substance: OMEPRAZOLE
     Indication: DYSPEPSIA

REACTIONS (9)
  - Hypomagnesaemia [None]
  - Asthenia [None]
  - Hypovolaemia [None]
  - Decreased appetite [None]
  - Hypocalcaemia [None]
  - Vomiting [None]
  - Paraesthesia [None]
  - Tetany [None]
  - Tachycardia [None]
